FAERS Safety Report 9789655 (Version 1)
Quarter: 2013Q4

REPORT INFORMATION
  Report Type: Spontaneous
  Country: JP (occurrence: JP)
  Receive Date: 20131231
  Receipt Date: 20131231
  Transmission Date: 20140711
  Serious: Yes (Other)
  Sender: FDA-Public Use
  Company Number: JP-GE HEALTHCARE MEDICAL DIAGNOSTICS-OSCN-PR-1312L-0174

PATIENT
  Age: 45 Year
  Sex: Female

DRUGS (4)
  1. OMNISCAN [Suspect]
     Indication: INVESTIGATION
     Route: 065
  2. OMNISCAN [Suspect]
     Indication: METASTASIS
  3. OMNISCAN [Suspect]
     Indication: DIAGNOSTIC PROCEDURE
  4. MAGNEVIST [Suspect]

REACTIONS (1)
  - Nuclear magnetic resonance imaging brain abnormal [Unknown]
